FAERS Safety Report 8968010 (Version 1)
Quarter: 2012Q4

REPORT INFORMATION
  Report Type: 
  Country: GB (occurrence: GB)
  Receive Date: 20121218
  Receipt Date: 20121218
  Transmission Date: 20130627
  Serious: Yes (Hospitalization)
  Sender: FDA-Public Use
  Company Number: GB-SANOFI-AVENTIS-2012SA089819

PATIENT
  Sex: Female

DRUGS (2)
  1. LANTUS [Suspect]
     Indication: TYPE 1 DIABETES MELLITUS
     Dosage: 20 + 34
     Route: 058
  2. NOVORAPID [Suspect]
     Indication: TYPE 1 DIABETES MELLITUS
     Dosage: 10 IU, tid
     Route: 065

REACTIONS (2)
  - Diabetic ketoacidosis [Unknown]
  - Blood glucose increased [Unknown]
